FAERS Safety Report 20322133 (Version 2)
Quarter: 2022Q2

REPORT INFORMATION
  Report Type: Spontaneous
  Country: PK (occurrence: PK)
  Receive Date: 20220111
  Receipt Date: 20220505
  Transmission Date: 20220721
  Serious: Yes (Other)
  Sender: FDA-Public Use
  Company Number: PK-PFIZER INC-2019505641

PATIENT
  Age: 46 Year
  Sex: Male
  Weight: 73 kg

DRUGS (5)
  1. ENBREL [Suspect]
     Active Substance: ETANERCEPT
     Indication: Ankylosing spondylitis
     Dosage: 50 MG, ONCE IN 15 DAYS (TWICE MONTHLY)
     Route: 058
  2. ENBREL [Suspect]
     Active Substance: ETANERCEPT
     Indication: Arthritis
     Dosage: MONTHLY FOR 6 MONTHS
     Route: 058
     Dates: start: 20020120
  3. ENBREL [Suspect]
     Active Substance: ETANERCEPT
     Indication: Spondyloarthropathy
     Dosage: FORTNIGHTLY
     Route: 058
  4. ENBREL [Suspect]
     Active Substance: ETANERCEPT
     Dosage: 50 MG, WEEKLY
     Route: 058
     Dates: start: 20211217
  5. SALAZODINE [Concomitant]
     Indication: Spondyloarthropathy
     Dosage: 1 G, 2X/DAY

REACTIONS (8)
  - Off label use [Unknown]
  - Musculoskeletal stiffness [Unknown]
  - Pain [Unknown]
  - Arthralgia [Unknown]
  - Joint swelling [Unknown]
  - Product dose omission issue [Unknown]
  - Uveitis [Unknown]
  - Dengue fever [Unknown]

NARRATIVE: CASE EVENT DATE: 20210101
